FAERS Safety Report 6077762-3 (Version None)
Quarter: 2009Q1

REPORT INFORMATION
  Report Type: 
  Country: None (occurrence: None)
  Receive Date: 20090213
  Receipt Date: 20090204
  Transmission Date: 20090719
  Serious: Yes (Life-Threatening)
  Sender: FDA-Public Use
  Company Number: SE-PFIZER INC-2009165261

PATIENT

DRUGS (3)
  1. SPIRONOLACTONE [Suspect]
     Dosage: FREQUENCY: EVERY DAY;
  2. KALEORID [Concomitant]
     Dosage: UNK
  3. ZOLPIDEM TARTRATE [Concomitant]
     Dosage: UNK

REACTIONS (1)
  - HYPOKALAEMIA [None]
